FAERS Safety Report 19674896 (Version 2)
Quarter: 2021Q4

REPORT INFORMATION
  Report Type: Spontaneous
  Country: US (occurrence: US)
  Receive Date: 20210809
  Receipt Date: 20211012
  Transmission Date: 20220303
  Serious: Yes (Hospitalization)
  Sender: FDA-Public Use
  Company Number: US-Y-MABS THERAPEUTICS-2114770

PATIENT
  Age: 22 Year
  Sex: Female
  Weight: 27.27 kg

DRUGS (17)
  1. DANYELZA [Suspect]
     Active Substance: NAXITAMAB-GQGK
     Indication: Neuroblastoma
     Route: 042
     Dates: start: 20210614, end: 20210618
  2. GABAPENTIN [Concomitant]
     Active Substance: GABAPENTIN
  3. ALBUTEROL [Concomitant]
     Active Substance: ALBUTEROL
  4. Anithypertensives [Concomitant]
  5. SALINE [Concomitant]
     Active Substance: SODIUM CHLORIDE
  6. ACETAMINOPHEN [Concomitant]
     Active Substance: ACETAMINOPHEN
  7. PEPCID [Concomitant]
     Active Substance: FAMOTIDINE
  8. DIPHENHYDRAMINE [Concomitant]
     Active Substance: DIPHENHYDRAMINE
  9. ONDANSETRON [Concomitant]
     Active Substance: ONDANSETRON
  10. METHYLPREDNISOLONE [Concomitant]
     Active Substance: METHYLPREDNISOLONE
  11. DILAUDID [Concomitant]
     Active Substance: HYDROMORPHONE HYDROCHLORIDE
  12. OXYCODONE. [Concomitant]
     Active Substance: OXYCODONE HYDROCHLORIDE
  13. HYDROCORTISONE (HYDROCORTISONE ACETATE) [Concomitant]
     Active Substance: HYDROCORTISONE ACETATE
     Dates: start: 20210614
  14. CAPSAICIN [Concomitant]
     Active Substance: CAPSAICIN
     Dates: start: 20210616
  15. KEPPRA [Concomitant]
     Active Substance: LEVETIRACETAM
     Dates: start: 20210616
  16. MARINOL [Concomitant]
     Active Substance: DRONABINOL
  17. UNSPECIFIED INGREDIENT [Concomitant]
     Active Substance: UNSPECIFIED INGREDIENT

REACTIONS (12)
  - Neuralgia [Recovered/Resolved]
  - Neuralgia [Recovered/Resolved]
  - Neuralgia [Recovered/Resolved]
  - Bronchospasm [Recovered/Resolved]
  - Bronchospasm [Recovered/Resolved]
  - Bronchospasm [Recovered/Resolved]
  - Muscle spasms [Recovered/Resolved]
  - Hypertension [Recovered/Resolved]
  - Headache [Recovered/Resolved]
  - Oropharyngeal pain [Unknown]
  - Hypotension [Unknown]
  - Nausea [Unknown]

NARRATIVE: CASE EVENT DATE: 20210614
